FAERS Safety Report 6244323-2 (Version None)
Quarter: 2009Q2

REPORT INFORMATION
  Report Type: 
  Country: None (occurrence: None)
  Receive Date: 20090623
  Receipt Date: 20090623
  Transmission Date: 20091009
  Serious: No
  Sender: FDA-Public Use
  Company Number: None

PATIENT
  Sex: Male
  Weight: 85.8 kg

DRUGS (3)
  1. CISPLATIN [Suspect]
     Dosage: 30 MG
     Dates: end: 20090616
  2. ERBITUX [Suspect]
     Dosage: 525 MG
     Dates: end: 20090616
  3. TAXOL [Suspect]
     Dosage: 105 MG
     Dates: end: 20090616

REACTIONS (8)
  - BLOOD CREATININE INCREASED [None]
  - BLOOD PRESSURE ORTHOSTATIC DECREASED [None]
  - BLOOD SODIUM DECREASED [None]
  - DIZZINESS [None]
  - HAEMATOCRIT DECREASED [None]
  - HYPERHIDROSIS [None]
  - HYPOVOLAEMIA [None]
  - VISION BLURRED [None]
